FAERS Safety Report 6468661-3 (Version None)
Quarter: 2009Q4

REPORT INFORMATION
  Report Type: 
  Country: None (occurrence: None)
  Receive Date: 20091119
  Receipt Date: 20090727
  Transmission Date: 20100525
  Serious: No
  Sender: FDA-Public Use
  Company Number: WAES 0907USA04823

PATIENT
  Age: 61 Year
  Sex: Female

DRUGS (8)
  1. JANUVIA [Suspect]
     Indication: DIABETES MELLITUS
     Dosage: 100MG/DAILY/PO
     Route: 048
     Dates: start: 20080727, end: 20090722
  2. ACTOS [Concomitant]
  3. ACTOS [Concomitant]
  4. ALLEGRA [Concomitant]
  5. GLUCOTROL XL [Concomitant]
  6. GLUCOTROL XL [Concomitant]
  7. CALCIUM (UNSPECIFIED) [Concomitant]
  8. VITAMIN D (UNSPECIFIED) [Concomitant]

REACTIONS (1)
  - MEDICATION RESIDUE [None]
